FAERS Safety Report 8270092-0 (Version None)
Quarter: 2012Q2

REPORT INFORMATION
  Report Type: 
  Country: None (occurrence: None)
  Receive Date: 20120410
  Receipt Date: 20120404
  Transmission Date: 20120825
  Serious: Yes (Death, Hospitalization)
  Sender: FDA-Public Use
  Company Number: JP-JNJFOC-20100305826

PATIENT
  Sex: Female
  Weight: 52 kg

DRUGS (30)
  1. DECADRON [Concomitant]
     Route: 048
     Dates: start: 20090806, end: 20090812
  2. DECADRON [Concomitant]
     Route: 048
     Dates: start: 20090814, end: 20090814
  3. GRAN [Concomitant]
     Indication: WHITE BLOOD CELL COUNT DECREASED
     Route: 058
     Dates: start: 20090702, end: 20090702
  4. DAIO-KANZO-TO [Concomitant]
     Indication: CONSTIPATION
     Route: 048
  5. AZUNOL [Concomitant]
     Indication: PROPHYLAXIS
     Route: 048
     Dates: start: 20090614
  6. DECADRON [Concomitant]
     Route: 048
     Dates: start: 20090716, end: 20090716
  7. DOXIL [Suspect]
     Dosage: CYCLE 1
     Route: 042
     Dates: start: 20090612, end: 20090612
  8. DECADRON [Concomitant]
     Route: 048
     Dates: start: 20090715, end: 20090715
  9. SUNRYTHM [Concomitant]
     Indication: MITRAL VALVE INCOMPETENCE
     Route: 048
  10. DECADRON [Concomitant]
     Route: 048
     Dates: start: 20090813, end: 20090813
  11. THIAMINE MONOPHOSPHATE DISULFIDE [Concomitant]
     Indication: PROPHYLAXIS
     Route: 042
     Dates: start: 20090807, end: 20090808
  12. THIAMINE MONOPHOSPHATE DISULFIDE [Concomitant]
     Route: 042
     Dates: start: 20090710, end: 20090711
  13. MEIACT [Concomitant]
     Indication: ILL-DEFINED DISORDER
     Route: 048
     Dates: start: 20090622, end: 20090709
  14. DECADRON [Concomitant]
     Indication: PROPHYLAXIS
     Route: 048
     Dates: start: 20090911, end: 20090911
  15. DECADRON [Concomitant]
     Route: 048
     Dates: start: 20090903, end: 20090909
  16. THIAMINE MONOPHOSPHATE DISULFIDE [Concomitant]
     Route: 042
     Dates: start: 20090612, end: 20090613
  17. DOXIL [Suspect]
     Dosage: CYCLE 2
     Route: 042
     Dates: start: 20090710, end: 20090710
  18. GEMCITABINE HYDROCHLORIDE [Concomitant]
     Indication: ILL-DEFINED DISORDER
     Route: 065
     Dates: end: 20090501
  19. DOXIL [Suspect]
     Dosage: CYCLE 4
     Route: 042
     Dates: start: 20090904, end: 20090904
  20. DECADRON [Concomitant]
     Route: 048
     Dates: start: 20090613, end: 20090613
  21. RAMELTEON [Concomitant]
     Route: 042
     Dates: start: 20090612, end: 20090613
  22. THIAMINE MONOPHOSPHATE DISULFIDE [Concomitant]
     Route: 042
     Dates: start: 20090904, end: 20090905
  23. DOXIL [Suspect]
     Indication: OVARIAN CANCER RECURRENT
     Dosage: CYCLE 3
     Route: 042
     Dates: start: 20090807, end: 20090807
  24. ZOLPIDEM [Concomitant]
     Indication: INSOMNIA
     Route: 048
  25. DECADRON [Concomitant]
     Route: 048
     Dates: start: 20090709, end: 20090714
  26. DECADRON [Concomitant]
     Route: 048
     Dates: start: 20090910, end: 20090910
  27. BANAN [Concomitant]
     Indication: ILL-DEFINED DISORDER
     Route: 048
     Dates: start: 20090614, end: 20090619
  28. RAMELTEON [Concomitant]
     Indication: PROPHYLAXIS
     Route: 042
     Dates: start: 20090904, end: 20090905
  29. RAMELTEON [Concomitant]
     Route: 042
     Dates: start: 20090807, end: 20090808
  30. RAMELTEON [Concomitant]
     Route: 042
     Dates: start: 20090710, end: 20090711

REACTIONS (2)
  - INTERSTITIAL LUNG DISEASE [None]
  - OVARIAN CANCER RECURRENT [None]
